FAERS Safety Report 5411941-0 (Version None)
Quarter: 2007Q3

REPORT INFORMATION
  Report Type: 
  Country: None (occurrence: None)
  Receive Date: 20070810
  Receipt Date: 20070810
  Transmission Date: 20080115
  Serious: Yes (Hospitalization)
  Sender: FDA-Public Use
  Company Number: None

PATIENT
  Sex: Male
  Weight: 87.27 kg

DRUGS (6)
  1. TEMOZOLOMIDE [Suspect]
     Dosage: 150 MG
  2. TEMOZOLOMIDE [Suspect]
  3. TEMOZOLOMIDE [Suspect]
  4. TEMOZOLOMIDE [Suspect]
  5. TEMOZOLOMIDE [Suspect]
  6. HERBAL AGENTS [Concomitant]

REACTIONS (8)
  - BRAIN OEDEMA [None]
  - CONFUSIONAL STATE [None]
  - CONVULSION [None]
  - DISEASE PROGRESSION [None]
  - POSTICTAL STATE [None]
  - RADIATION INJURY [None]
  - SOMNOLENCE [None]
  - TREMOR [None]
